FAERS Safety Report 7751069 (Version 6)
Quarter: 2012Q4

REPORT INFORMATION
  Report Type: Report from Study
  Country: US (occurrence: US)
  Receive Date: 20110106
  Receipt Date: 20121115
  Transmission Date: 20130627
  Serious: Yes (Other)
  Sender: FDA-Public Use
  Company Number: US-ABBOTT-10P-163-0694296-00

PATIENT
  Age: 70 None
  Sex: Female
  Weight: 60.84 kg

DRUGS (13)
  1. HUMIRA 40 MG/0.8 ML PEN [Suspect]
     Indication: RHEUMATOID ARTHRITIS
     Dates: start: 200509
  2. DIOVAN [Concomitant]
     Indication: HYPERTENSION
  3. LEVOTHYROXINE [Concomitant]
     Indication: HYPOTHYROIDISM
  4. FOLIC ACID [Concomitant]
     Indication: VITAMIN SUPPLEMENTATION
  5. SINGULAIR [Concomitant]
     Indication: ASTHMA
  6. CELEBREX [Concomitant]
     Indication: RHEUMATOID ARTHRITIS
  7. LOVASTATIN [Concomitant]
     Indication: BLOOD CHOLESTEROL INCREASED
  8. CARDIZEM LA [Concomitant]
     Indication: HYPERTENSION
  9. Q-VAR INHALER [Concomitant]
     Indication: ASTHMA
     Route: 055
  10. LANOXIN [Concomitant]
     Indication: ATRIAL FIBRILLATION
  11. METHOTREXATE [Concomitant]
     Indication: PRODUCT USED FOR UNKNOWN INDICATION
     Route: 048
  12. WARFARIN [Concomitant]
     Indication: ATRIAL FIBRILLATION
     Dosage: 2 once every 3 days, 1.5 for 2 days
  13. VITAMIN D [Concomitant]
     Indication: PRODUCT USED FOR UNKNOWN INDICATION

REACTIONS (17)
  - Atrial fibrillation [Unknown]
  - Foot deformity [Recovering/Resolving]
  - Pain in extremity [Not Recovered/Not Resolved]
  - Sinusitis [Recovered/Resolved]
  - Upper respiratory tract infection [Recovered/Resolved]
  - Nail injury [Recovered/Resolved]
  - Dental caries [Recovered/Resolved]
  - Haemorrhage [Recovered/Resolved]
  - Onychomycosis [Recovered/Resolved]
  - Injection site pain [Unknown]
  - Foot deformity [Unknown]
  - Muscle spasms [Unknown]
  - Asthma [Recovering/Resolving]
  - Injection site nodule [Unknown]
  - Incorrect dose administered [Unknown]
  - Injection site extravasation [Unknown]
  - Abdominal pain [Unknown]
